FAERS Safety Report 15418857 (Version 2)
Quarter: 2018Q3

REPORT INFORMATION
  Report Type: Spontaneous
  Country: US (occurrence: US)
  Receive Date: 20180924
  Receipt Date: 20180929
  Transmission Date: 20181010
  Serious: No
  Sender: FDA-Public Use
  Company Number: US-SA-2018SA263763

PATIENT
  Age: 23 Year
  Sex: Female

DRUGS (6)
  1. IBUPROFEN. [Concomitant]
     Active Substance: IBUPROFEN
  2. DUPIXENT [Suspect]
     Active Substance: DUPILUMAB
     Dosage: 300 MG, QOW
     Route: 058
     Dates: start: 2018
  3. AMOXICILINA CLAV [AMOXICILLIN SODIUM;CLAVULANATE POTASSIUM] [Concomitant]
  4. FUROSEMIDE. [Concomitant]
     Active Substance: FUROSEMIDE
  5. DUPIXENT [Suspect]
     Active Substance: DUPILUMAB
     Dosage: 600 MG, 1X
     Route: 058
     Dates: start: 20180715, end: 20180715
  6. OLOPATADINE. [Concomitant]
     Active Substance: OLOPATADINE

REACTIONS (5)
  - Oedema peripheral [Recovering/Resolving]
  - Skin discolouration [Unknown]
  - Fluid retention [Unknown]
  - Feeling hot [Unknown]
  - Pain [Unknown]
